FAERS Safety Report 9236305 (Version 1)
Quarter: 2013Q2

REPORT INFORMATION
  Report Type: Report from Study
  Country: CA (occurrence: CA)
  Receive Date: 20130417
  Receipt Date: 20130417
  Transmission Date: 20140414
  Serious: Yes (Death)
  Sender: FDA-Public Use
  Company Number: CA-PFIZER INC-2013119004

PATIENT
  Sex: 0

DRUGS (2)
  1. SUTENT [Suspect]
     Indication: COLORECTAL CANCER METASTATIC
     Dosage: UNK
     Dates: end: 20100729
  2. CAPECITABINE [Suspect]
     Indication: COLORECTAL CANCER METASTATIC

REACTIONS (2)
  - Disease progression [Fatal]
  - Colorectal cancer metastatic [Fatal]
